FAERS Safety Report 6171285-9 (Version None)
Quarter: 2009Q2

REPORT INFORMATION
  Report Type: 
  Country: None (occurrence: None)
  Receive Date: 20090424
  Receipt Date: 20090424
  Transmission Date: 20091009
  Serious: No
  Sender: FDA-Public Use
  Company Number: None

PATIENT
  Age: 35 Year
  Sex: Female
  Weight: 86.637 kg

DRUGS (1)
  1. CYMBALTA [Suspect]
     Indication: ANXIETY
     Dosage: 30 MG
     Dates: start: 20090423, end: 20090423

REACTIONS (6)
  - CHILLS [None]
  - DISTURBANCE IN ATTENTION [None]
  - HYPERAESTHESIA [None]
  - MYALGIA [None]
  - MYDRIASIS [None]
  - TRISMUS [None]
